FAERS Safety Report 5025314-6 (Version None)
Quarter: 2006Q2

REPORT INFORMATION
  Report Type: 
  Country: None (occurrence: None)
  Receive Date: 20060426
  Receipt Date: 20060119
  Transmission Date: 20061013
  Serious: Yes (Other)
  Sender: FDA-Public Use
  Company Number: 2006010699

PATIENT
  Age: 70 Year
  Sex: Male
  Weight: 89.3586 kg

DRUGS (9)
  1. LYRICA [Suspect]
     Indication: PAIN IN EXTREMITY
     Dosage: 100 MG (50 MG 2 IN 1 D),
     Dates: start: 20060110
  2. VOLTAREN [Suspect]
     Indication: ILL-DEFINED DISORDER
     Dosage: 150 MG (75 MG, 2 IN 1 D)
     Route: 065
  3. COUMADIN [Suspect]
     Indication: ILL-DEFINED DISORDER
     Route: 065
  4. TOPROL-XL [Suspect]
     Indication: ILL-DEFINED DISORDER
     Dosage: 50 MG (50 MG, 1 IN 1 D)
  5. LANOXIN [Suspect]
     Indication: ILL-DEFINED DISORDER
  6. PERCOCET [Suspect]
     Indication: ILL-DEFINED DISORDER
  7. GLUCOPHAGE [Concomitant]
  8. DYAZIDE [Concomitant]
  9. STARLIX [Concomitant]

REACTIONS (3)
  - DRUG INTERACTION [None]
  - FATIGUE [None]
  - NEUROPATHY [None]
